FAERS Safety Report 4369151-4 (Version None)
Quarter: 2004Q2

REPORT INFORMATION
  Report Type: 
  Country: None (occurrence: None)
  Receive Date: 20040528
  Receipt Date: 20040514
  Transmission Date: 20050107
  Serious: Yes (Hospitalization)
  Sender: FDA-Public Use
  Company Number: 2004-06536

PATIENT
  Age: 39 Year
  Sex: Male
  Weight: 63.1 kg

DRUGS (5)
  1. TENOFOVIR DF (TENOFOVIR DISOPROXIL FUMARATE) [Suspect]
     Indication: HIV INFECTION
     Dosage: 300 MG, ONCE A DAY, ORAL
     Route: 048
     Dates: start: 20021010
  2. 3TC (LAMIVUDINE) [Concomitant]
  3. KALETRA [Concomitant]
  4. SERAX [Concomitant]
  5. TETRACYCLINE [Concomitant]

REACTIONS (4)
  - INSOMNIA [None]
  - PERICARDIAL EFFUSION [None]
  - PERICARDITIS [None]
  - VENTRICULAR HYPOKINESIA [None]
